FAERS Safety Report 9346983 (Version 5)
Quarter: 2013Q4

REPORT INFORMATION
  Report Type: Report from Study
  Country: JP (occurrence: JP)
  Receive Date: 20130613
  Receipt Date: 20131003
  Transmission Date: 20140711
  Serious: No
  Sender: FDA-Public Use
  Company Number: JP-JNJFOC-20130606739

PATIENT
  Age: 64 Year
  Sex: Female
  Weight: 59 kg

DRUGS (8)
  1. SIMPONI [Suspect]
     Indication: RHEUMATOID ARTHRITIS
     Route: 058
     Dates: start: 20130422, end: 20130422
  2. METHOTREXATE [Concomitant]
     Indication: RHEUMATOID ARTHRITIS
     Dates: start: 20120106, end: 20121227
  3. METHOTREXATE [Concomitant]
     Indication: RHEUMATOID ARTHRITIS
     Dates: start: 20130225, end: 20130520
  4. METHOTREXATE [Concomitant]
     Indication: RHEUMATOID ARTHRITIS
     Dates: start: 20130110, end: 20130218
  5. PREDNISOLONE [Concomitant]
     Route: 048
     Dates: start: 20121211
  6. PREDNISOLONE [Concomitant]
     Route: 048
     Dates: start: 20120106, end: 20121210
  7. THYRADIN S [Concomitant]
     Indication: HYPOTHYROIDISM
     Route: 048
  8. ZETIA [Concomitant]
     Indication: HYPERLIPIDAEMIA
     Route: 048

REACTIONS (2)
  - Hypothyroidism [Recovered/Resolved]
  - Hyperlipidaemia [Recovering/Resolving]
